FAERS Safety Report 5595204-9 (Version None)
Quarter: 2008Q1

REPORT INFORMATION
  Report Type: 
  Country: None (occurrence: None)
  Receive Date: 20080117
  Receipt Date: 20080109
  Transmission Date: 20080703
  Serious: Yes (Death, Other)
  Sender: FDA-Public Use
  Company Number: US-PFIZER INC-2008002972

PATIENT
  Age: 53 Year
  Sex: Female

DRUGS (5)
  1. ALPRAZOLAM [Suspect]
  2. OXYCODONE [Suspect]
  3. DULOXETINE [Suspect]
  4. TRAZODONE HYDROCHLORIDE [Suspect]
  5. MUSCLE RELAXANTS [Suspect]

REACTIONS (3)
  - CARDIAC ARREST [None]
  - COMPLETED SUICIDE [None]
  - RESPIRATORY ARREST [None]
